FAERS Safety Report 7876422-3 (Version None)
Quarter: 2011Q4

REPORT INFORMATION
  Report Type: 
  Country: None (occurrence: None)
  Receive Date: 20111031
  Receipt Date: 20111020
  Transmission Date: 20120403
  Serious: Yes (Hospitalization)
  Sender: FDA-Public Use
  Company Number: PHHY2011GR92547

PATIENT

DRUGS (1)
  1. ILARIS [Suspect]

REACTIONS (1)
  - HEPATIC ENZYME INCREASED [None]
